FAERS Safety Report 15206360 (Version 1)
Quarter: 2018Q3

REPORT INFORMATION
  Report Type: Report from Study
  Country: GB (occurrence: GB)
  Receive Date: 20180727
  Receipt Date: 20180727
  Transmission Date: 20181010
  Serious: Yes (Other)
  Sender: FDA-Public Use
  Company Number: GB-ROCHE-1936513

PATIENT
  Sex: Male

DRUGS (1)
  1. ESBRIET [Suspect]
     Active Substance: PIRFENIDONE
     Indication: IDIOPATHIC PULMONARY FIBROSIS
     Route: 048
     Dates: start: 20161025, end: 201706

REACTIONS (17)
  - Pneumonia [Unknown]
  - Orthopnoea [Unknown]
  - Fatigue [Unknown]
  - Irritable bowel syndrome [Unknown]
  - Cough [Unknown]
  - Diarrhoea [Unknown]
  - Frequent bowel movements [Unknown]
  - Ill-defined disorder [Unknown]
  - Lethargy [Unknown]
  - Mouth ulceration [Recovering/Resolving]
  - Gastrooesophageal reflux disease [Unknown]
  - Constipation [Unknown]
  - Rash [Unknown]
  - Skin disorder [Recovering/Resolving]
  - Eructation [Unknown]
  - Chest pain [Unknown]
  - Nasopharyngitis [Unknown]
